FAERS Safety Report 24004285 (Version 1)
Quarter: 2024Q2

REPORT INFORMATION
  Report Type: Spontaneous
  Country: US (occurrence: US)
  Receive Date: 20240624
  Receipt Date: 20240624
  Transmission Date: 20240716
  Serious: Yes (Hospitalization)
  Sender: FDA-Public Use
  Company Number: US-NOVITIUMPHARMA-2024USNVP01077

PATIENT
  Age: 38 Year
  Sex: Female

DRUGS (4)
  1. ESTRADIOL [Suspect]
     Active Substance: ESTRADIOL
     Indication: Transgender hormonal therapy
     Route: 048
  2. ESTRADIOL [Suspect]
     Active Substance: ESTRADIOL
     Route: 048
  3. ESTRADIOL [Suspect]
     Active Substance: ESTRADIOL
     Route: 048
  4. ESTRADIOL [Suspect]
     Active Substance: ESTRADIOL
     Route: 048

REACTIONS (3)
  - Drug level above therapeutic [Unknown]
  - Androgen deficiency [Unknown]
  - Product administration error [Unknown]
